FAERS Safety Report 4780363-8 (Version None)
Quarter: 2005Q3

REPORT INFORMATION
  Report Type: 
  Country: None (occurrence: None)
  Receive Date: 20050926
  Receipt Date: 20050916
  Transmission Date: 20060218
  Serious: Yes (Disabling, Other)
  Sender: FDA-Public Use
  Company Number: A106704

PATIENT
  Age: 72 Year
  Sex: Male
  Weight: 90.7194 kg

DRUGS (1)
  1. VIAGRA [Suspect]
     Indication: ERECTILE DYSFUNCTION
     Dosage: 100 MG (PRN), ORAL
     Route: 048
     Dates: start: 19980501, end: 20000501

REACTIONS (3)
  - BLINDNESS UNILATERAL [None]
  - CHEST PAIN [None]
  - HEADACHE [None]
